FAERS Safety Report 9230960 (Version 2)
Quarter: 2013Q2

REPORT INFORMATION
  Report Type: Spontaneous
  Country: US (occurrence: US)
  Receive Date: 20130415
  Receipt Date: 20130529
  Transmission Date: 20140414
  Serious: Yes (Other)
  Sender: FDA-Public Use
  Company Number: US-TEVA-397495USA

PATIENT
  Sex: Female

DRUGS (5)
  1. QVAR [Suspect]
  2. BUSPIRONE [Concomitant]
  3. PRAVASTATIN [Concomitant]
  4. PRO-AIR [Concomitant]
  5. OMEPRAZOLE [Concomitant]
     Dosage: TWICE A DAY

REACTIONS (5)
  - Coeliac disease [Not Recovered/Not Resolved]
  - Gastric mucosa erythema [Unknown]
  - Diverticulum [Unknown]
  - Polyp [Unknown]
  - Haemorrhoids [Unknown]
